FAERS Safety Report 11809447 (Version 2)
Quarter: 2016Q4

REPORT INFORMATION
  Report Type: Report from Study
  Country: CA (occurrence: CA)
  Receive Date: 20151208
  Receipt Date: 20161215
  Transmission Date: 20170206
  Serious: Yes (Death, Other)
  Sender: FDA-Public Use
  Company Number: CA-ROCHE-1674152

PATIENT
  Age: 63 Year
  Sex: Male

DRUGS (5)
  1. RAMIPRIL. [Concomitant]
     Active Substance: RAMIPRIL
  2. ALENDRONATE [Concomitant]
     Active Substance: ALENDRONATE SODIUM
  3. HYDROMORPHONE [Concomitant]
     Active Substance: HYDROMORPHONE
  4. VENTOLIN [Concomitant]
     Active Substance: ALBUTEROL SULFATE
  5. ESBRIET [Suspect]
     Active Substance: PIRFENIDONE
     Indication: IDIOPATHIC PULMONARY FIBROSIS
     Route: 048
     Dates: start: 20151130, end: 201512

REACTIONS (6)
  - Fatigue [Unknown]
  - Lip swelling [Unknown]
  - Heart rate increased [Recovered/Resolved]
  - Abdominal discomfort [Unknown]
  - Dysphagia [Unknown]
  - Death [Fatal]

NARRATIVE: CASE EVENT DATE: 201512
